FAERS Safety Report 4452506-7 (Version None)
Quarter: 2004Q3

REPORT INFORMATION
  Report Type: 
  Country: None (occurrence: None)
  Receive Date: 20040916
  Receipt Date: 20040906
  Transmission Date: 20050211
  Serious: Yes (Other)
  Sender: FDA-Public Use
  Company Number: 2004062853

PATIENT
  Sex: Female

DRUGS (2)
  1. NEURONTIN [Suspect]
     Indication: PHANTOM PAIN
     Dosage: 200 MG (100 MG, 2 IN 1D), ORAL
     Route: 048
  2. CLOMIPRAMINE HCL [Concomitant]

REACTIONS (2)
  - GAIT DISTURBANCE [None]
  - PANCREATIC ATROPHY [None]
